FAERS Safety Report 22603245 (Version 1)
Quarter: 2023Q2

REPORT INFORMATION
  Report Type: Spontaneous
  Country: CN (occurrence: CN)
  Receive Date: 20230615
  Receipt Date: 20230615
  Transmission Date: 20230721
  Serious: Yes (Other)
  Sender: FDA-Public Use
  Company Number: None

PATIENT
  Age: 36 Year
  Sex: Male

DRUGS (2)
  1. MANNITOL [Suspect]
     Active Substance: MANNITOL
     Indication: Back pain
     Dosage: 150 ML ONCE DAILY
     Route: 041
     Dates: start: 20230530, end: 20230530
  2. DEXAMETHASONE SODIUM PHOSPHATE [Suspect]
     Active Substance: DEXAMETHASONE SODIUM PHOSPHATE
     Indication: Back pain
     Dosage: 5 MG ONCE DAILY (MANUFACTURER: TIANJIN JINYAO GROUP HUBEI TIANYAO PHARMACEUTICAL CO., LTD.)
     Route: 041
     Dates: start: 20230530, end: 20230530

REACTIONS (3)
  - Rash [Recovering/Resolving]
  - Pruritus [Recovering/Resolving]
  - Discomfort [Recovering/Resolving]

NARRATIVE: CASE EVENT DATE: 20230530
